FAERS Safety Report 7210555-X (Version None)
Quarter: 2011Q1

REPORT INFORMATION
  Report Type: 
  Country: None (occurrence: None)
  Receive Date: 20110105
  Receipt Date: 20101230
  Transmission Date: 20110831
  Serious: Yes (Hospitalization)
  Sender: FDA-Public Use
  Company Number: FR-ROCHE-751200

PATIENT
  Sex: Female

DRUGS (6)
  1. XELODA [Suspect]
     Route: 048
     Dates: start: 20100501, end: 20100823
  2. NEXIUM [Concomitant]
     Route: 048
  3. LASIX [Concomitant]
     Route: 048
  4. BISOPROLOL FUMARATE [Concomitant]
     Dosage: I DOSE DAILY
     Route: 048
  5. ATARAX [Concomitant]
     Route: 048
  6. PREVISCAN [Interacting]
     Indication: PULMONARY EMBOLISM
     Route: 048
     Dates: end: 20100825

REACTIONS (4)
  - ILEITIS [None]
  - GENERAL PHYSICAL HEALTH DETERIORATION [None]
  - MELAENA [None]
  - DRUG INTERACTION [None]
